FAERS Safety Report 16641252 (Version 3)
Quarter: 2019Q3

REPORT INFORMATION
  Report Type: Spontaneous
  Country: JP (occurrence: JP)
  Receive Date: 20190729
  Receipt Date: 20190905
  Transmission Date: 20191004
  Serious: Yes (Hospitalization, Other)
  Sender: FDA-Public Use
  Company Number: JP-UCBSA-2019030941

PATIENT
  Age: 71 Year
  Sex: Male

DRUGS (12)
  1. VIMPAT [Suspect]
     Active Substance: LACOSAMIDE
     Indication: STATUS EPILEPTICUS
  2. PHENOBARBITAL. [Concomitant]
     Active Substance: PHENOBARBITAL
     Indication: PRODUCT USED FOR UNKNOWN INDICATION
     Route: 048
  3. VIMPAT [Suspect]
     Active Substance: LACOSAMIDE
     Indication: OFF LABEL USE
     Dosage: 100 MILLIGRAM, 2X/DAY (BID)
     Route: 048
     Dates: start: 20190717
  4. PHENOBAL [PHENOBARBITAL SODIUM] [Concomitant]
     Route: 048
     Dates: start: 20190716, end: 20190717
  5. FOSTOIN [Suspect]
     Active Substance: FOSPHENYTOIN SODIUM
     Indication: STATUS EPILEPTICUS
     Dosage: 1050 MG
     Route: 042
     Dates: start: 20190709, end: 20190710
  6. E KEPPRA [Concomitant]
     Active Substance: LEVETIRACETAM
     Indication: STATUS EPILEPTICUS
     Dates: start: 20190706, end: 20190707
  7. PHENOBAL [PHENOBARBITAL SODIUM] [Concomitant]
     Indication: STATUS EPILEPTICUS
     Route: 048
     Dates: start: 20190713, end: 20190715
  8. PHENOBAL [PHENOBARBITAL SODIUM] [Concomitant]
     Route: 048
     Dates: start: 20190718
  9. VIMPAT [Suspect]
     Active Substance: LACOSAMIDE
     Indication: STATUS EPILEPTICUS
     Dosage: 50 MILLIGRAM, 2X/DAY (BID)
     Route: 048
     Dates: start: 20190711, end: 201907
  10. ALEVIATIN [PHENYTOIN] [Concomitant]
     Active Substance: PHENYTOIN
     Indication: STATUS EPILEPTICUS
     Route: 048
     Dates: start: 20190710, end: 20190717
  11. NOBELBAR [Concomitant]
     Active Substance: PHENOBARBITAL SODIUM
     Indication: STATUS EPILEPTICUS
     Route: 042
     Dates: start: 20190710, end: 20190710
  12. NOBELBAR [Concomitant]
     Active Substance: PHENOBARBITAL SODIUM
     Route: 042
     Dates: start: 20190711, end: 20190712

REACTIONS (5)
  - Off label use [Unknown]
  - Bradyarrhythmia [Recovered/Resolved]
  - Blood potassium increased [Recovered/Resolved]
  - Hepatic function abnormal [Recovered/Resolved]
  - Blood sodium decreased [Recovered/Resolved]

NARRATIVE: CASE EVENT DATE: 20190711
